FAERS Safety Report 16059730 (Version 1)
Quarter: 2019Q1

REPORT INFORMATION
  Report Type: Spontaneous
  Country: US (occurrence: US)
  Receive Date: 20190209
  Receipt Date: 20190209
  Transmission Date: 20190418
  Serious: Yes (Hospitalization)
  Sender: FDA-Public Use
  Company Number: None

PATIENT
  Age: 75 Year
  Sex: Female
  Weight: 120.6 kg

DRUGS (8)
  1. BYSTOLIC [Concomitant]
     Active Substance: NEBIVOLOL HYDROCHLORIDE
  2. DOXORUBICIN [Concomitant]
     Active Substance: DOXORUBICIN
  3. ASPIRIN. [Concomitant]
     Active Substance: ASPIRIN
  4. JANUVIA [Concomitant]
     Active Substance: SITAGLIPTIN PHOSPHATE
  5. METFORMIN [Concomitant]
     Active Substance: METFORMIN HYDROCHLORIDE
  6. LISINOPRIL. [Concomitant]
     Active Substance: LISINOPRIL
  7. CYCLOPHOSPHAMIDE. [Concomitant]
     Active Substance: CYCLOPHOSPHAMIDE
  8. ARIMIDEX [Suspect]
     Active Substance: ANASTROZOLE
     Dates: end: 20181103

REACTIONS (5)
  - Pancytopenia [None]
  - Pyrexia [None]
  - Packed red blood cell transfusion [None]
  - Heart rate increased [None]
  - Blood pressure decreased [None]

NARRATIVE: CASE EVENT DATE: 20190122
